FAERS Safety Report 4565537-3 (Version None)
Quarter: 2005Q1

REPORT INFORMATION
  Report Type: 
  Country: None (occurrence: None)
  Receive Date: 20050126
  Receipt Date: 20050107
  Transmission Date: 20050727
  Serious: Yes (Hospitalization, Other)
  Sender: FDA-Public Use
  Company Number: USA040567830

PATIENT
  Age: 86 Year
  Sex: Female
  Weight: 77 kg

DRUGS (6)
  1. FORTEO [Suspect]
     Indication: OSTEOPOROSIS
     Dosage: 20 UG DAY
     Dates: start: 20040101
  2. CORTEF (HYDROCORTISONE CIPIONATE) [Concomitant]
  3. SYNTHROID [Concomitant]
  4. MESTINON [Concomitant]
  5. ALBUTEROL [Concomitant]
  6. PULMICORT RESPULES [Concomitant]

REACTIONS (3)
  - ELECTROLYTE IMBALANCE [None]
  - PHARMACEUTICAL PRODUCT COMPLAINT [None]
  - PULMONARY EMBOLISM [None]
